FAERS Safety Report 7396403-6 (Version None)
Quarter: 2011Q2

REPORT INFORMATION
  Report Type: 
  Country: None (occurrence: None)
  Receive Date: 20110406
  Receipt Date: 20110331
  Transmission Date: 20111010
  Serious: Yes (Life-Threatening)
  Sender: FDA-Public Use
  Company Number: JP-SHIRE-SPV1-2011-00399

PATIENT
  Age: 51 Year
  Sex: Male

DRUGS (9)
  1. FOSRENOL [Suspect]
     Indication: HYPERPHOSPHATAEMIA
     Dosage: 1500 MG, UNK
     Route: 048
     Dates: end: 20110228
  2. PRECIPITATED CALCIUM CARBONATE [Concomitant]
     Indication: HYPERPHOSPHATAEMIA
     Dosage: 1500 MG, UNKNOWN
     Route: 048
     Dates: end: 20110228
  3. BLOPRESS [Concomitant]
     Indication: HYPERTENSION
     Dosage: 8 MG, UNKNOWN
     Route: 048
     Dates: end: 20110228
  4. LOXONIN [Concomitant]
     Indication: PAIN IN EXTREMITY
     Dosage: 120 MG, UNKNOWN
     Route: 048
     Dates: end: 20110228
  5. PROMAC                             /00024401/ [Concomitant]
     Indication: PRODUCT USED FOR UNKNOWN INDICATION
     Dosage: 1 G, UNKNOWN
     Route: 048
     Dates: end: 20110228
  6. GASMOTIN [Concomitant]
     Indication: PRODUCT USED FOR UNKNOWN INDICATION
     Dosage: 10 MG, UNKNOWN
     Route: 048
     Dates: end: 20110228
  7. DOMPERIDONE [Concomitant]
     Indication: PRODUCT USED FOR UNKNOWN INDICATION
     Dosage: 20 MG, UNKNOWN
     Route: 048
     Dates: end: 20110228
  8. ARTIST [Concomitant]
     Indication: HYPERTENSION
     Dosage: 20 MG, UNKNOWN
     Route: 048
     Dates: end: 20110228
  9. TAKEPRON [Concomitant]
     Indication: PRODUCT USED FOR UNKNOWN INDICATION
     Dosage: 15 MG, UNKNOWN
     Route: 048
     Dates: end: 20110228

REACTIONS (3)
  - MEDICATION RESIDUE [None]
  - LOWER GASTROINTESTINAL HAEMORRHAGE [None]
  - RECTAL ULCER [None]
